FAERS Safety Report 20965200 (Version 1)
Quarter: 2022Q2

REPORT INFORMATION
  Report Type: Spontaneous
  Country: CN (occurrence: CN)
  Receive Date: 20220616
  Receipt Date: 20220616
  Transmission Date: 20220721
  Serious: Yes (Hospitalization)
  Sender: FDA-Public Use
  Company Number: CN-ABBOTT-2022A-1349874

PATIENT
  Age: 16 Year
  Sex: Male
  Weight: 80 kg

DRUGS (2)
  1. FENOFIBRATE [Suspect]
     Active Substance: FENOFIBRATE
     Indication: Lipids increased
     Dosage: UNIT DOSE + DAILY DOSE: 1 CAPSULE
     Route: 048
     Dates: start: 20210608, end: 20220603
  2. METFORMIN HYDROCHLORIDE [Suspect]
     Active Substance: METFORMIN HYDROCHLORIDE
     Indication: Blood glucose increased
     Dosage: DAILY DOSE: 3 TABLETS; UNIT DOSE: 1 TABLET
     Route: 065
     Dates: start: 20210608, end: 20220523

REACTIONS (1)
  - Hepatic function abnormal [Recovering/Resolving]

NARRATIVE: CASE EVENT DATE: 20220315
